FAERS Safety Report 5051662-X (Version None)
Quarter: 2006Q3

REPORT INFORMATION
  Report Type: 
  Country: None (occurrence: None)
  Receive Date: 20060711
  Receipt Date: 20060705
  Transmission Date: 20061208
  Serious: Yes (Other)
  Sender: FDA-Public Use
  Company Number: 200612802BCC

PATIENT
  Age: 52 Year
  Sex: Female

DRUGS (1)
  1. ALKA SELTZER PLUS COLD AND SINUS [Suspect]
     Dosage: ORAL
     Route: 048

REACTIONS (3)
  - ARTERY DISSECTION [None]
  - CEREBROVASCULAR ACCIDENT [None]
  - UNEVALUABLE EVENT [None]
